FAERS Safety Report 24758031 (Version 1)
Quarter: 2024Q4

REPORT INFORMATION
  Report Type: Spontaneous
  Country: US (occurrence: US)
  Receive Date: 20241220
  Receipt Date: 20241220
  Transmission Date: 20250114
  Serious: No
  Sender: UCB
  Company Number: US-UCBSA-2024047310

PATIENT
  Sex: Male
  Weight: 124.72 kg

DRUGS (1)
  1. BIMZELX [Suspect]
     Active Substance: BIMEKIZUMAB-BKZX
     Indication: Psoriasis
     Dosage: 320 MILLIGRAM, EV 4 WEEKS (AT WEEK 8, 12, 16 AS DIRECTED)
     Route: 058
     Dates: start: 202407

REACTIONS (2)
  - Bursitis [Unknown]
  - Gout [Unknown]

NARRATIVE: CASE EVENT DATE: 20240101
